FAERS Safety Report 7922178-5 (Version None)
Quarter: 2011Q4

REPORT INFORMATION
  Report Type: 
  Country: None (occurrence: None)
  Receive Date: 20111117
  Receipt Date: 20110127
  Transmission Date: 20120403
  Serious: No
  Sender: FDA-Public Use
  Company Number: US-AMGEN-USASP2011001631

PATIENT
  Sex: Female

DRUGS (3)
  1. ENBREL [Suspect]
     Indication: PSORIATIC ARTHROPATHY
  2. ENBREL [Suspect]
     Indication: PSORIASIS
  3. ENBREL [Suspect]
     Indication: ANKYLOSING SPONDYLITIS
     Dosage: 50 MG, QWK
     Dates: start: 20060401

REACTIONS (6)
  - PSORIASIS [None]
  - ANKYLOSING SPONDYLITIS [None]
  - IMPAIRED HEALING [None]
  - PSORIATIC ARTHROPATHY [None]
  - ALOPECIA [None]
  - DRUG INEFFECTIVE [None]
